FAERS Safety Report 6522985-X (Version None)
Quarter: 2009Q4

REPORT INFORMATION
  Report Type: 
  Country: None (occurrence: None)
  Receive Date: 20091222
  Receipt Date: 20091208
  Transmission Date: 20100525
  Serious: Yes (Other)
  Sender: FDA-Public Use
  Company Number: 2009AL007671

PATIENT

DRUGS (1)
  1. PROPYLTHIOURACIL [Suspect]
     Dosage: 100 MG; QID; TRPL
     Route: 064

REACTIONS (4)
  - FOETAL DISORDER [None]
  - GOITRE [None]
  - HYPOTHYROIDISM [None]
  - MATERNAL DRUGS AFFECTING FOETUS [None]
